FAERS Safety Report 15969400 (Version 2)
Quarter: 2022Q1

REPORT INFORMATION
  Report Type: Report from Study
  Country: US (occurrence: US)
  Receive Date: 20190215
  Receipt Date: 20220223
  Transmission Date: 20220423
  Serious: Yes (Other)
  Sender: FDA-Public Use
  Company Number: US-JAZZ-2019-US-002181

PATIENT
  Sex: Female

DRUGS (34)
  1. XYREM [Suspect]
     Active Substance: SODIUM OXYBATE
     Indication: Narcolepsy
     Dosage: 1.5 GRAM, BID
     Dates: start: 201210, end: 201211
  2. XYREM [Suspect]
     Active Substance: SODIUM OXYBATE
     Dosage: DOSE ADJUSTMENTS
     Dates: start: 201211, end: 201311
  3. XYREM [Suspect]
     Active Substance: SODIUM OXYBATE
     Dosage: 3.75 GRAM, BID
     Route: 048
     Dates: start: 201311
  4. PROZAC [Concomitant]
     Active Substance: FLUOXETINE HYDROCHLORIDE
     Indication: Product used for unknown indication
     Dosage: UNK
     Dates: start: 19970901, end: 20170322
  5. LAMICTAL [Concomitant]
     Active Substance: LAMOTRIGINE
     Indication: Product used for unknown indication
     Dosage: UNK
     Dates: start: 20180602
  6. CYMBALTA [Concomitant]
     Active Substance: DULOXETINE HYDROCHLORIDE
     Indication: Product used for unknown indication
     Dosage: UNK
     Dates: start: 20170601
  7. LYRICA [Concomitant]
     Active Substance: PREGABALIN
     Indication: Product used for unknown indication
     Dosage: UNK
     Route: 048
     Dates: start: 20170601
  8. NAPROXEN [Concomitant]
     Active Substance: NAPROXEN
     Indication: Product used for unknown indication
     Dosage: UNK
     Dates: start: 20170601
  9. CYANOCOBALAMIN [Concomitant]
     Active Substance: CYANOCOBALAMIN
     Indication: Product used for unknown indication
     Dosage: UNK
     Dates: start: 20161231
  10. COENZYME Q10 [Concomitant]
     Active Substance: DIETARY SUPPLEMENT\UBIDECARENONE
     Indication: Product used for unknown indication
     Dosage: UNK
     Dates: start: 20150915, end: 20170322
  11. TOLTERODINE TARTRATE [Concomitant]
     Active Substance: TOLTERODINE TARTRATE
     Indication: Product used for unknown indication
     Dosage: UNK
     Dates: start: 20150616, end: 20170831
  12. MELOXICAM [Concomitant]
     Active Substance: MELOXICAM
     Indication: Product used for unknown indication
     Dosage: UNK
     Dates: start: 20150915, end: 20170601
  13. NORVASC [Concomitant]
     Active Substance: AMLODIPINE BESYLATE
     Indication: Product used for unknown indication
     Dosage: UNK
     Dates: start: 20150915
  14. VITAMIN D3 [Concomitant]
     Active Substance: CHOLECALCIFEROL
     Indication: Product used for unknown indication
     Dosage: UNK
     Dates: start: 20150915
  15. ESTRADIOL [Concomitant]
     Active Substance: ESTRADIOL
     Indication: Product used for unknown indication
     Dosage: UNK
     Dates: start: 20150616
  16. ALPRAZOLAM [Concomitant]
     Active Substance: ALPRAZOLAM
     Indication: Product used for unknown indication
     Dosage: UNK
     Dates: start: 20130410, end: 20150915
  17. ETODOLAC [Concomitant]
     Active Substance: ETODOLAC
     Indication: Product used for unknown indication
     Dosage: UNK
     Dates: start: 20130410, end: 20150915
  18. BIOTIN [Concomitant]
     Active Substance: BIOTIN
     Indication: Product used for unknown indication
  19. LORATADINE [Concomitant]
     Active Substance: LORATADINE
     Indication: Product used for unknown indication
     Dosage: UNK
     Dates: start: 20121211, end: 20150915
  20. FISH OIL [Concomitant]
     Active Substance: FISH OIL
     Indication: Product used for unknown indication
     Dosage: UNK
     Dates: start: 20121211, end: 20150915
  21. VYVANSE [Concomitant]
     Active Substance: LISDEXAMFETAMINE DIMESYLATE
     Indication: Product used for unknown indication
     Dosage: UNK
     Dates: start: 20120601, end: 20170628
  22. OMEPRAZOLE [Concomitant]
     Active Substance: OMEPRAZOLE
     Indication: Product used for unknown indication
     Dosage: UNK
     Dates: start: 20120301, end: 20121211
  23. SIMVASTATIN [Concomitant]
     Active Substance: SIMVASTATIN
     Indication: Product used for unknown indication
     Dosage: UNK
     Dates: start: 20090901, end: 20170322
  24. RELPAX [Concomitant]
     Active Substance: ELETRIPTAN HYDROBROMIDE
     Indication: Product used for unknown indication
  25. ADDERALL [Concomitant]
     Active Substance: AMPHETAMINE ASPARTATE\AMPHETAMINE SULFATE\DEXTROAMPHETAMINE SACCHARATE\DEXTROAMPHETAMINE SULFATE
     Indication: Product used for unknown indication
  26. FLUOXETINE HYDROCHLORIDE [Concomitant]
     Active Substance: FLUOXETINE HYDROCHLORIDE
     Indication: Product used for unknown indication
  27. LAMOTRIGINE [Concomitant]
     Active Substance: LAMOTRIGINE
     Indication: Product used for unknown indication
  28. PYRIDOXINE [Concomitant]
     Active Substance: PYRIDOXINE
     Indication: Product used for unknown indication
  29. CYANOCOBALAMIN\FOLIC ACID [Concomitant]
     Active Substance: CYANOCOBALAMIN\FOLIC ACID
     Indication: Product used for unknown indication
     Dosage: UNK
     Dates: start: 20161231
  30. PREGABALIN AB [Concomitant]
     Indication: Product used for unknown indication
     Dosage: UNK
     Dates: start: 20191001
  31. VITAMIN D3 [Concomitant]
     Active Substance: CHOLECALCIFEROL
     Indication: Product used for unknown indication
     Dosage: UNK
     Dates: start: 20150915
  32. GLUCOSAMINE CHONDROITIN ADVANCED [Concomitant]
     Indication: Product used for unknown indication
     Dosage: UNK
     Dates: start: 20121211
  33. ZONEGRAN [Concomitant]
     Active Substance: ZONISAMIDE
     Indication: Product used for unknown indication
     Dosage: 0010
     Dates: start: 20080901
  34. VITAMIN D3 [Concomitant]
     Active Substance: CHOLECALCIFEROL
     Indication: Product used for unknown indication

REACTIONS (2)
  - Neuropathy peripheral [Not Recovered/Not Resolved]
  - Arthritis [Not Recovered/Not Resolved]
